FAERS Safety Report 13157935 (Version 1)
Quarter: 2017Q1

REPORT INFORMATION
  Report Type: Spontaneous
  Country: US (occurrence: US)
  Receive Date: 20170124
  Receipt Date: 20170124
  Transmission Date: 20170428
  Serious: Yes (Other)
  Sender: FDA-Public Use
  Company Number: None

PATIENT
  Age: 35 Year
  Sex: Male
  Weight: 108 kg

DRUGS (6)
  1. TALTZ [Suspect]
     Active Substance: IXEKIZUMAB
     Indication: PSORIASIS
     Dosage: OTHER FREQUENCY:EVERY 4 WEEKS;?
     Route: 058
     Dates: start: 20160914
  2. CALCIUM 500 + D [Concomitant]
     Active Substance: CALCIUM\VITAMIN D
  3. CYCLOSPORINE. [Concomitant]
     Active Substance: CYCLOSPORINE
  4. FOLIC ACID. [Concomitant]
     Active Substance: FOLIC ACID
  5. MULTIVITAMIN [Concomitant]
     Active Substance: VITAMINS
  6. LEVOTHYROXINE. [Concomitant]
     Active Substance: LEVOTHYROXINE

REACTIONS (1)
  - Drug effect decreased [None]

NARRATIVE: CASE EVENT DATE: 20170119
